FAERS Safety Report 22254177 (Version 3)
Quarter: 2023Q2

REPORT INFORMATION
  Report Type: Report from Study
  Country: JP (occurrence: JP)
  Receive Date: 20230426
  Receipt Date: 20230525
  Transmission Date: 20230721
  Serious: Yes (Other)
  Sender: FDA-Public Use
  Company Number: JP-ASTELLAS-2023JP004987

PATIENT
  Age: 85 Year
  Sex: Male
  Weight: 35.4 kg

DRUGS (8)
  1. ENFORTUMAB VEDOTIN [Suspect]
     Active Substance: ENFORTUMAB VEDOTIN
     Indication: Transitional cell carcinoma
     Dosage: 1.25 MG/KG, ADMINISTERED ONCE A WEEK FOR 3 CONSECUTIVE WEEKS, WITH A BREAK IN THE 4TH WEEK
     Route: 041
     Dates: start: 20220106, end: 20220414
  2. ENFORTUMAB VEDOTIN [Suspect]
     Active Substance: ENFORTUMAB VEDOTIN
     Dosage: 1.25 MG/KG, ADMINISTERED ONCE A WEEK FOR 3 CONSECUTIVE WEEKS, WITH A BREAK IN THE 4TH WEEK
     Route: 041
     Dates: start: 20220512, end: 20220526
  3. ENFORTUMAB VEDOTIN [Suspect]
     Active Substance: ENFORTUMAB VEDOTIN
     Dosage: 1.25 MG/KG, ADMINISTERED ONCE A WEEK FOR 3 CONSECUTIVE WEEKS, WITH A BREAK IN THE 4TH WEEK
     Route: 041
     Dates: start: 20220616, end: 20220616
  4. ENFORTUMAB VEDOTIN [Suspect]
     Active Substance: ENFORTUMAB VEDOTIN
     Dosage: 1.25 MG/KG, ADMINISTERED ONCE A WEEK FOR 3 CONSECUTIVE WEEKS, WITH A BREAK IN THE 4TH WEEK
     Route: 041
     Dates: start: 20220707, end: 20220804
  5. ENFORTUMAB VEDOTIN [Suspect]
     Active Substance: ENFORTUMAB VEDOTIN
     Dosage: 1.25 MG/KG, ADMINISTERED ONCE A WEEK FOR 3 CONSECUTIVE WEEKS, WITH A BREAK IN THE 4TH WEEK
     Route: 041
     Dates: start: 20220818, end: 20220901
  6. ENFORTUMAB VEDOTIN [Suspect]
     Active Substance: ENFORTUMAB VEDOTIN
     Dosage: 1.25 MG/KG, ADMINISTERED ONCE A WEEK FOR 3 CONSECUTIVE WEEKS, WITH A BREAK IN THE 4TH WEEK
     Route: 041
     Dates: start: 20220922, end: 20221020
  7. ENFORTUMAB VEDOTIN [Suspect]
     Active Substance: ENFORTUMAB VEDOTIN
     Dosage: 1.25 MG/KG, ADMINISTERED ONCE A WEEK FOR 3 CONSECUTIVE WEEKS, WITH A BREAK IN THE 4TH WEEK
     Route: 041
     Dates: start: 20221104
  8. PNEUMOCOCCAL VACCINE POLYVALENT NOS [Concomitant]
     Active Substance: PNEUMOCOCCAL VACCINE POLYVALENT
     Indication: Product used for unknown indication
     Dosage: UNK UNK, UNKNOWN FREQ.
     Route: 065

REACTIONS (2)
  - Cataract [Unknown]
  - Pneumonia [Unknown]

NARRATIVE: CASE EVENT DATE: 20230420
